FAERS Safety Report 20986373 (Version 1)
Quarter: 2022Q2

REPORT INFORMATION
  Report Type: Spontaneous
  Country: MX (occurrence: None)
  Receive Date: 20220619
  Receipt Date: 20220619
  Transmission Date: 20220721
  Serious: Yes (Hospitalization)
  Sender: FDA-Public Use
  Company Number: None

PATIENT
  Age: 40 Year
  Sex: Female
  Weight: 65 kg

DRUGS (5)
  1. CHLOROQUINE [Suspect]
     Active Substance: CHLOROQUINE
     Indication: Rheumatoid arthritis
     Dosage: OTHER QUANTITY : 10 TABLET(S);?
     Route: 048
  2. CHLOROQUINE [Suspect]
     Active Substance: CHLOROQUINE
     Indication: Fibromyalgia
  3. Vitamins and calcium [Concomitant]
  4. METHOTREXATE [Concomitant]
     Active Substance: METHOTREXATE
  5. PREGABALIN [Concomitant]
     Active Substance: PREGABALIN

REACTIONS (8)
  - Vision blurred [None]
  - Headache [None]
  - Nausea [None]
  - Heart rate increased [None]
  - Chest pain [None]
  - Pain in extremity [None]
  - Therapy cessation [None]
  - Hypoaesthesia [None]

NARRATIVE: CASE EVENT DATE: 20220115
